FAERS Safety Report 6277778-8 (Version None)
Quarter: 2009Q3

REPORT INFORMATION
  Report Type: 
  Country: None (occurrence: None)
  Receive Date: 20090720
  Receipt Date: 20090709
  Transmission Date: 20100115
  Serious: Yes (Other)
  Sender: FDA-Public Use
  Company Number: GXKR2009GB07874

PATIENT
  Age: 56 Year
  Sex: Female
  Weight: 58 kg

DRUGS (8)
  1. CHLORPHENIRAMINE MALEATE [Suspect]
     Indication: ANTIALLERGIC THERAPY
     Dosage: 10 MG, INTRAVENOUS
     Route: 042
     Dates: start: 20090603, end: 20090603
  2. RITUXAN [Suspect]
     Indication: RHEUMATOID ARTHRITIS
     Dosage: 1000 MG, INFUSION
     Dates: start: 20090603, end: 20090603
  3. METHYLPREDNISOLONE [Suspect]
     Indication: STEROID THERAPY
     Dosage: 100 MG, INTRAVENOUS
     Route: 042
     Dates: start: 20090603, end: 20090603
  4. DICLOFENAC (DICLOFENAC) [Concomitant]
  5. FOLIC ACID [Concomitant]
  6. METHOTREXATE [Concomitant]
  7. RISEDRONATE SODIUM [Concomitant]
  8. TRAMADOL HCL [Concomitant]

REACTIONS (6)
  - DIZZINESS [None]
  - ERYTHEMA [None]
  - FEELING COLD [None]
  - PYREXIA [None]
  - RASH [None]
  - TREMOR [None]
